FAERS Safety Report 8879991 (Version 4)
Quarter: 2013Q3

REPORT INFORMATION
  Report Type: Spontaneous
  Country: DE (occurrence: DE)
  Receive Date: 20121031
  Receipt Date: 20130822
  Transmission Date: 20140515
  Serious: Yes (Hospitalization)
  Sender: FDA-Public Use
  Company Number: DE-ABBOTT-12P-062-0999548-00

PATIENT
  Age: 44 Year
  Sex: Female

DRUGS (5)
  1. HUMIRA [Suspect]
     Indication: ANKYLOSING SPONDYLITIS
     Route: 058
     Dates: start: 20100923, end: 20130619
  2. ANTIHYPERTENSIVES [Concomitant]
     Indication: HYPERTENSION
  3. THYROID THERAPY [Concomitant]
     Indication: THYROID DISORDER
  4. ANALGESICS [Concomitant]
     Indication: PRODUCT USED FOR UNKNOWN INDICATION
  5. LEVETIRACETAM [Concomitant]
     Indication: PRODUCT USED FOR UNKNOWN INDICATION

REACTIONS (12)
  - Epilepsy [Not Recovered/Not Resolved]
  - Transient ischaemic attack [Unknown]
  - Personality change [Unknown]
  - Speech disorder [Unknown]
  - Gaze palsy [Unknown]
  - Gait disturbance [Unknown]
  - Herpes zoster [Unknown]
  - Erysipelas [Unknown]
  - External ear inflammation [Unknown]
  - Inflammation [Not Recovered/Not Resolved]
  - Therapy change [Recovered/Resolved]
  - Rash erythematous [Not Recovered/Not Resolved]
